FAERS Safety Report 9704254 (Version 1)
Quarter: 2013Q4

REPORT INFORMATION
  Report Type: Spontaneous
  Country: US (occurrence: US)
  Receive Date: 20131122
  Receipt Date: 20131122
  Transmission Date: 20140711
  Serious: No
  Sender: FDA-Public Use
  Company Number: US-MYLANLABS-2013S1013313

PATIENT
  Age: 68 Year
  Sex: Male

DRUGS (5)
  1. AMLODIPINE BESYLATE TABLETS [Suspect]
     Indication: HYPERTENSION
     Route: 048
  2. ALLEGRA [Suspect]
     Indication: MULTIPLE ALLERGIES
  3. BENICAR [Suspect]
     Indication: HYPERTENSION
  4. ZANTAC [Suspect]
     Indication: GASTROOESOPHAGEAL REFLUX DISEASE
  5. AMOXICILLIN CAPSULES, USP [Suspect]
     Indication: SINUSITIS

REACTIONS (2)
  - Palpitations [Recovering/Resolving]
  - Feeling abnormal [Recovering/Resolving]
